FAERS Safety Report 18627016 (Version 1)
Quarter: 2020Q4

REPORT INFORMATION
  Report Type: Report from Study
  Country: PA (occurrence: PA)
  Receive Date: 20201217
  Receipt Date: 20201217
  Transmission Date: 20210114
  Serious: Yes (Other)
  Sender: FDA-Public Use
  Company Number: NVSC2020PA331027

PATIENT
  Age: 61 Year
  Sex: Male

DRUGS (1)
  1. EXFORGE [Suspect]
     Active Substance: AMLODIPINE BESYLATE\VALSARTAN
     Indication: CARDIAC DISORDER
     Dosage: 5/160 MG
     Route: 065
     Dates: start: 2004

REACTIONS (2)
  - Product use in unapproved indication [Unknown]
  - Infarction [Unknown]
